FAERS Safety Report 12480956 (Version 1)
Quarter: 2016Q2

REPORT INFORMATION
  Report Type: Spontaneous
  Country: US (occurrence: US)
  Receive Date: 20160620
  Receipt Date: 20160620
  Transmission Date: 20160815
  Serious: No
  Sender: FDA-Public Use
  Company Number: US-BAUSCH-BL-2015-026185

PATIENT
  Age: 87 Year
  Sex: Male
  Weight: 74.91 kg

DRUGS (2)
  1. PROVENGE [Suspect]
     Active Substance: SIPULEUCEL-T
     Indication: PROSTATE CANCER
     Dosage: 250 ML, SINGLE
     Route: 042
     Dates: start: 20151009, end: 20151009
  2. PROVENGE [Suspect]
     Active Substance: SIPULEUCEL-T
     Dosage: 250 ML, SINGLE
     Route: 042
     Dates: start: 20151023, end: 20151023

REACTIONS (8)
  - Clumsiness [Recovering/Resolving]
  - Swelling face [Recovering/Resolving]
  - Malaise [Unknown]
  - Laceration [Recovering/Resolving]
  - Fall [Unknown]
  - Contusion [Not Recovered/Not Resolved]
  - Infusion site haematoma [Recovering/Resolving]
  - Fatigue [Not Recovered/Not Resolved]

NARRATIVE: CASE EVENT DATE: 201510
